FAERS Safety Report 9029261 (Version 2)
Quarter: 2013Q2

REPORT INFORMATION
  Report Type: Spontaneous
  Country: BR (occurrence: BR)
  Receive Date: 20130125
  Receipt Date: 20130410
  Transmission Date: 20140414
  Serious: Yes (Hospitalization, Other)
  Sender: FDA-Public Use
  Company Number: BR-ABBOTT-13P-020-1038656-00

PATIENT
  Sex: Female
  Weight: 66 kg

DRUGS (14)
  1. SYNTHROID [Suspect]
     Indication: THYROID HORMONE REPLACEMENT THERAPY
     Dosage: UNKNOWN DOSE
  2. SYNTHROID [Suspect]
     Route: 048
  3. SYNTHROID [Suspect]
     Route: 048
     Dates: start: 201210
  4. XALACOM [Suspect]
     Indication: PRODUCT USED FOR UNKNOWN INDICATION
  5. AAS [Concomitant]
     Indication: BLOOD DISORDER
     Dosage: IN THE MORNING
     Route: 048
  6. ALPRAZOLAM [Concomitant]
     Indication: ANXIETY
     Route: 048
  7. ANCORON [Concomitant]
     Indication: ARRHYTHMIA
     Dosage: 100 MG DAILY
     Route: 048
     Dates: start: 201209
  8. XALATAN [Concomitant]
     Indication: GLAUCOMA
     Route: 047
     Dates: start: 2011
  9. LANTUS [Concomitant]
     Indication: DIABETES MELLITUS
     Dosage: DEPENDS ON GLUCOSE LEVELS
     Route: 058
     Dates: start: 20100724
  10. LANTUS [Concomitant]
     Indication: HORMONE REPLACEMENT THERAPY
  11. NICORD [Concomitant]
     Indication: HYPERTENSION
     Dosage: IN THE MORNING/AT NIGHT
     Route: 048
     Dates: start: 2003
  12. OMEPRAZOLE [Concomitant]
     Indication: PROPHYLAXIS
     Route: 048
     Dates: start: 20100624
  13. COSOPT [Concomitant]
     Indication: GLAUCOMA
     Route: 047
     Dates: start: 2011
  14. CREON [Concomitant]
     Indication: PRODUCT USED FOR UNKNOWN INDICATION
     Dosage: 175000IU DAILY
     Route: 048

REACTIONS (5)
  - Pancreatic neoplasm [Unknown]
  - Pancreatic carcinoma [Recovered/Resolved]
  - Arrhythmia [Recovered/Resolved]
  - Arrhythmia [Unknown]
  - Ocular hyperaemia [Unknown]
